FAERS Safety Report 16662009 (Version 2)
Quarter: 2020Q1

REPORT INFORMATION
  Report Type: Report from Study
  Country: US (occurrence: US)
  Receive Date: 20190802
  Receipt Date: 20200129
  Transmission Date: 20200409
  Serious: No
  Sender: FDA-Public Use
  Company Number: US-EXELIXIS-CABO-19018060

PATIENT
  Sex: Female

DRUGS (10)
  1. CABOMETYX [Suspect]
     Active Substance: CABOZANTINIB S-MALATE
     Indication: METASTASES TO PELVIS
     Dosage: 60 MG, QD
     Route: 048
  2. ATENOLOL. [Concomitant]
     Active Substance: ATENOLOL
  3. HYDROCODONE [Concomitant]
     Active Substance: HYDROCODONE
  4. ZINC. [Concomitant]
     Active Substance: ZINC
  5. GAVILYTE G [Concomitant]
     Active Substance: POLYETHYLENE GLYCOL 3350\POTASSIUM CHLORIDE\SODIUM BICARBONATE\SODIUM CHLORIDE\SODIUM SULFATE ANHYDROUS
     Dosage: UNK
  6. CABOMETYX [Suspect]
     Active Substance: CABOZANTINIB S-MALATE
     Indication: METASTASES TO KIDNEY
     Dosage: 60 MG, QD(DAY ON AN EMPTY STOMACH)
     Route: 048
     Dates: start: 20171013
  7. VITAMIN D [Concomitant]
     Active Substance: VITAMIN D NOS
  8. ALOE VERA [Concomitant]
     Active Substance: ALOE VERA LEAF
  9. SYNTHROID [Concomitant]
     Active Substance: LEVOTHYROXINE SODIUM
  10. VALSARTAN AND HYDROCHLOROTHIAZIDE [Concomitant]
     Active Substance: HYDROCHLOROTHIAZIDE\VALSARTAN

REACTIONS (6)
  - Alopecia [Recovered/Resolved]
  - Adverse drug reaction [Unknown]
  - Drug ineffective for unapproved indication [Unknown]
  - Diarrhoea [Unknown]
  - Nasopharyngitis [Not Recovered/Not Resolved]
  - Pruritus [Recovered/Resolved]
